FAERS Safety Report 6453628-1 (Version None)
Quarter: 2009Q4

REPORT INFORMATION
  Report Type: 
  Country: None (occurrence: None)
  Receive Date: 20091124
  Receipt Date: 20091006
  Transmission Date: 20100525
  Serious: Yes (Other)
  Sender: FDA-Public Use
  Company Number: CHPA2009US19909

PATIENT
  Sex: Female
  Weight: 55.329 kg

DRUGS (8)
  1. LAMISIL AT ATHLETE'S FOOT CREAM (NCH) [Suspect]
     Dosage: UNK, UNK
     Route: 061
     Dates: start: 20090921, end: 20090924
  2. LAMISIL AT ATHLETE'S FOOT CREAM (NCH) [Suspect]
     Dosage: UNK, UNK
     Route: 061
     Dates: start: 20090901, end: 20090901
  3. LAMISIL RX TABLETS (NCH) [Suspect]
     Indication: TRICHOPHYTIC GRANULOMA
     Dosage: 250 MG, QD
     Route: 048
     Dates: start: 20090901, end: 20090924
  4. SYNTHROID [Concomitant]
  5. MULTI-VITAMINS [Concomitant]
  6. CALCIUM [Concomitant]
  7. FISH OIL [Concomitant]
  8. ASPIRIN [Concomitant]

REACTIONS (4)
  - AGEUSIA [None]
  - DRUG INEFFECTIVE [None]
  - OVERDOSE [None]
  - WEIGHT DECREASED [None]
